FAERS Safety Report 23441174 (Version 1)
Quarter: 2024Q1

REPORT INFORMATION
  Report Type: Other
  Country: JP (occurrence: None)
  Receive Date: 20240125
  Receipt Date: 20240125
  Transmission Date: 20240410
  Serious: Yes (Death, Life-Threatening)
  Sender: FDA-Public Use
  Company Number: JP-ROCHE-1863674

PATIENT
  Age: 64 Year
  Sex: Female
  Weight: 47.2 kg

DRUGS (18)
  1. RITUXIMAB [Suspect]
     Active Substance: RITUXIMAB
     Indication: Immune tolerance induction
     Route: 041
     Dates: start: 20140401, end: 20140401
  2. RITUXIMAB [Suspect]
     Active Substance: RITUXIMAB
     Indication: Transplant rejection
  3. VELCADE [Suspect]
     Active Substance: BORTEZOMIB
     Indication: Immune tolerance induction
     Route: 065
     Dates: start: 20140508, end: 20140508
  4. VELCADE [Suspect]
     Active Substance: BORTEZOMIB
     Indication: Transplant rejection
     Route: 065
     Dates: start: 20140511, end: 20140511
  5. VELCADE [Suspect]
     Active Substance: BORTEZOMIB
     Route: 065
     Dates: start: 20140515, end: 20140515
  6. VELCADE [Suspect]
     Active Substance: BORTEZOMIB
     Route: 065
     Dates: start: 20140518, end: 20140518
  7. MYCOPHENOLATE MOFETIL [Suspect]
     Active Substance: MYCOPHENOLATE MOFETIL
     Indication: Hepatic cirrhosis
     Route: 048
     Dates: start: 20140328
  8. LORMETAZEPAM [Concomitant]
     Active Substance: LORMETAZEPAM
     Indication: Insomnia
     Route: 048
     Dates: start: 201301
  9. NEXIUM [Concomitant]
     Active Substance: ESOMEPRAZOLE MAGNESIUM
     Route: 048
     Dates: start: 20130214
  10. AMLODIPINE BESYLATE [Concomitant]
     Active Substance: AMLODIPINE BESYLATE
     Dates: start: 20130228
  11. AMOXICILLIN [Concomitant]
     Active Substance: AMOXICILLIN
     Route: 048
     Dates: start: 20130319
  12. URSODIOL [Concomitant]
     Active Substance: URSODIOL
     Dates: start: 201304
  13. JANUVIA [Concomitant]
     Active Substance: SITAGLIPTIN PHOSPHATE
     Route: 048
     Dates: start: 201401
  14. ICOSAPENT [Concomitant]
     Active Substance: ICOSAPENT
     Route: 048
     Dates: start: 20140328, end: 20140403
  15. ALOSENN [Concomitant]
     Route: 048
     Dates: start: 201401
  16. LEVEMIR [Concomitant]
     Active Substance: INSULIN DETEMIR
     Route: 058
  17. PROGRAF [Concomitant]
     Active Substance: TACROLIMUS
     Route: 048
     Dates: start: 201301
  18. REBETOL [Concomitant]
     Active Substance: RIBAVIRIN
     Route: 048
     Dates: start: 20140328, end: 20140403

REACTIONS (4)
  - Sepsis [Fatal]
  - Urinary tract infection [Not Recovered/Not Resolved]
  - Cytomegalovirus test positive [Recovered/Resolved]
  - Off label use [Unknown]

NARRATIVE: CASE EVENT DATE: 20140519
